FAERS Safety Report 18529599 (Version 11)
Quarter: 2021Q4

REPORT INFORMATION
  Report Type: Report from Study
  Country: CA (occurrence: CA)
  Receive Date: 20201120
  Receipt Date: 20211012
  Transmission Date: 20220304
  Serious: Yes (Other)
  Sender: FDA-Public Use
  Company Number: CA-TAKEDA-CA202021176

PATIENT
  Age: 44 Year
  Sex: Male
  Weight: 72 kg

DRUGS (5)
  1. VELAGLUCERASE ALFA [Suspect]
     Active Substance: VELAGLUCERASE ALFA
     Indication: Gaucher^s disease
     Dosage: 2400 INTERNATIONAL UNIT, Q2WEEKS
     Route: 042
     Dates: start: 20190104
  2. VELAGLUCERASE ALFA [Suspect]
     Active Substance: VELAGLUCERASE ALFA
     Dosage: UNK UNK, Q3WEEKS
     Route: 065
     Dates: start: 20190104
  3. VELAGLUCERASE ALFA [Suspect]
     Active Substance: VELAGLUCERASE ALFA
     Dosage: 8 DOSAGE FORM, Q3WEEKS
     Route: 065
     Dates: start: 20190104
  4. VELAGLUCERASE ALFA [Suspect]
     Active Substance: VELAGLUCERASE ALFA
     Dosage: 3200 INTERNATIONAL UNIT, Q3WEEKS
     Route: 065
     Dates: start: 20190104
  5. VELAGLUCERASE ALFA [Suspect]
     Active Substance: VELAGLUCERASE ALFA
     Dosage: 3200 INTERNATIONAL UNIT, Q3WEEKS
     Route: 065
     Dates: start: 20190104

REACTIONS (17)
  - Inguinal hernia [Recovering/Resolving]
  - Chills [Unknown]
  - Nervousness [Recovered/Resolved]
  - Weight decreased [Unknown]
  - Weight fluctuation [Not Recovered/Not Resolved]
  - Poor venous access [Unknown]
  - Feeling cold [Unknown]
  - Nasopharyngitis [Unknown]
  - Anxiety [Recovered/Resolved]
  - Dizziness [Unknown]
  - Abdominal pain [Not Recovered/Not Resolved]
  - Bone pain [Not Recovered/Not Resolved]
  - Nausea [Not Recovered/Not Resolved]
  - Fatigue [Not Recovered/Not Resolved]
  - Fear of injection [Recovered/Resolved]
  - Infusion site pain [Recovered/Resolved]
  - Product dose omission issue [Unknown]

NARRATIVE: CASE EVENT DATE: 20200624
